FAERS Safety Report 5665253-0 (Version None)
Quarter: 2008Q1

REPORT INFORMATION
  Report Type: 
  Country: None (occurrence: None)
  Receive Date: 20080314
  Receipt Date: 20041004
  Transmission Date: 20080703
  Serious: No
  Sender: FDA-Public Use
  Company Number: US-ABBOTT-04P-163-0276288-00

PATIENT
  Sex: Female

DRUGS (3)
  1. HUMIRA [Suspect]
     Indication: RHEUMATOID ARTHRITIS
     Route: 058
     Dates: start: 20040701, end: 20040915
  2. PREDNISONE TAB [Concomitant]
     Indication: RHEUMATOID ARTHRITIS
     Route: 048
  3. HYDROCORTISONE CREAM [Concomitant]
     Indication: RASH
     Route: 061
     Dates: start: 20040915

REACTIONS (2)
  - PRURITUS [None]
  - RASH [None]
